FAERS Safety Report 4352997-6 (Version None)
Quarter: 2004Q2

REPORT INFORMATION
  Report Type: 
  Country: None (occurrence: None)
  Receive Date: 20040430
  Receipt Date: 20040210
  Transmission Date: 20050107
  Serious: No
  Sender: FDA-Public Use
  Company Number: 204662

PATIENT
  Age: 40 Year
  Sex: Female
  Weight: 91.6 kg

DRUGS (7)
  1. XOLAIR [Suspect]
     Indication: ASTHMA
     Dosage: 225 MG, 2/WEEK, SUBCUTANEOUS
     Route: 058
     Dates: start: 20031117
  2. ADVAIR DISKUS [Concomitant]
  3. ALBUTEROL (ALBUTEROL SULFATE, ALBUTEROL) [Concomitant]
  4. SINGULAIR [Concomitant]
  5. ZYRTEC [Concomitant]
  6. FLONASE [Concomitant]
  7. ORAL CONTRACEPTIVE (ORAL CONTRACEPTIVE) [Concomitant]

REACTIONS (2)
  - MIGRAINE [None]
  - PHOTOPHOBIA [None]
